FAERS Safety Report 8870072 (Version 2)
Quarter: 2013Q3

REPORT INFORMATION
  Report Type: Spontaneous
  Country: US (occurrence: US)
  Receive Date: 20121026
  Receipt Date: 20130930
  Transmission Date: 20140515
  Serious: No
  Sender: FDA-Public Use
  Company Number: US-AMGEN-USASP2012043758

PATIENT
  Age: 40 Year
  Sex: Female
  Weight: 86.62 kg

DRUGS (7)
  1. ENBREL [Suspect]
     Indication: PRODUCT USED FOR UNKNOWN INDICATION
     Dosage: 50 MG, QWK
     Route: 058
  2. METHOTREXATE [Concomitant]
     Dosage: 2.5 MG, UNK
  3. OMEPRAZOLE [Concomitant]
     Dosage: 20 MG, UNK
  4. FOLIC ACID [Concomitant]
     Dosage: 1 MG, UNK
  5. LEVOTHYROXINE [Concomitant]
     Dosage: 100 MUG, UNK
  6. SULINDAC [Concomitant]
     Dosage: 150 MG, AS NECESSARY
  7. HUMIRA [Concomitant]
     Dosage: 40 MG, UNK (40 MG/ 0.8)

REACTIONS (3)
  - Pain [Unknown]
  - Weight increased [Unknown]
  - Drug effect decreased [Unknown]
